FAERS Safety Report 9114739 (Version 1)
Quarter: 2013Q1

REPORT INFORMATION
  Report Type: Spontaneous
  Country: US (occurrence: None)
  Receive Date: 20130220
  Receipt Date: 20130220
  Transmission Date: 20140127
  Serious: Yes (Life-Threatening, Hospitalization)
  Sender: FDA-Public Use
  Company Number: None

PATIENT
  Age: 66 Year
  Sex: Male

DRUGS (2)
  1. HYDROMORPHONE [Suspect]
     Route: 042
     Dates: start: 20130114, end: 20130114
  2. FENTANYL [Suspect]
     Route: 042
     Dates: start: 20130114, end: 20130114

REACTIONS (3)
  - Sedation [None]
  - Respiratory depression [None]
  - Apnoea [None]
